FAERS Safety Report 4416273-5 (Version None)
Quarter: 2004Q3

REPORT INFORMATION
  Report Type: 
  Country: None (occurrence: None)
  Receive Date: 20040805
  Receipt Date: 20040726
  Transmission Date: 20050211
  Serious: Yes (Other)
  Sender: FDA-Public Use
  Company Number: PHHO2004CA10569

PATIENT
  Age: 64 Year
  Sex: Male

DRUGS (1)
  1. DIOVAN [Suspect]
     Dosage: 80 MG, UNK
     Dates: start: 20040712, end: 20040713

REACTIONS (5)
  - DIZZINESS [None]
  - PAIN [None]
  - RENAL PAIN [None]
  - SWOLLEN TONGUE [None]
  - URTICARIA [None]
